FAERS Safety Report 12765310 (Version 3)
Quarter: 2016Q4

REPORT INFORMATION
  Report Type: Spontaneous
  Country: US (occurrence: US)
  Receive Date: 20160921
  Receipt Date: 20161213
  Transmission Date: 20170207
  Serious: No
  Sender: FDA-Public Use
  Company Number: US-PFIZER INC-2016438190

PATIENT
  Age: 48 Year
  Sex: Female
  Weight: 83.46 kg

DRUGS (8)
  1. LYRICA [Suspect]
     Active Substance: PREGABALIN
     Indication: MYOFASCIAL PAIN SYNDROME
     Dosage: 50 MG, 3X/DAY
  2. LYRICA [Suspect]
     Active Substance: PREGABALIN
     Indication: ANXIETY
  3. CETAPHIL [Concomitant]
     Active Substance: AVOBENZONE\OCTOCRYLENE\TRICLOSAN
     Indication: ECZEMA
     Dosage: 2X/DAY, (APPLY TO SKIN TWICE DAILY AND AFTER BATHING OR HAND-WASHING)
     Route: 061
     Dates: start: 20160613
  4. LYRICA [Suspect]
     Active Substance: PREGABALIN
     Indication: FIBROMYALGIA
     Dosage: 100 MG, 3X/DAY
  5. GLUCOSAMINE + CHONDROITIN COMPLEX [Concomitant]
     Dosage: [(CHONDROITIN SULFATE-500 MG)/(GLUCOSAMINE SULFATE POTASSIUM CHLORIDE-400 MG)]
  6. RANITIDINE HCL [Concomitant]
     Active Substance: RANITIDINE HYDROCHLORIDE
     Dosage: 160 MG, UNK
     Route: 048
  7. GABAPENTIN. [Concomitant]
     Active Substance: GABAPENTIN
     Indication: FIBROMYALGIA
     Dosage: 100 MG,(TAKE ONE CAPSULE AT BEDTIME FOR ONE WEEK THEN TAKE ONE CAPSULE 2 TIMES PER DAY FOR ONE WEEK)
     Dates: start: 20161109
  8. ALENDRONATE SODIUM. [Concomitant]
     Active Substance: ALENDRONATE SODIUM
     Indication: OSTEOPOROSIS
     Dosage: 70 MG, WEEKLY, (TAKE ONE TABLET ONCE WEEKLY)
     Dates: start: 20160805

REACTIONS (6)
  - Visual acuity reduced [Unknown]
  - Gait disturbance [Unknown]
  - Feeling abnormal [Recovered/Resolved]
  - Confusional state [Recovered/Resolved]
  - Drug ineffective [Unknown]
  - Pain [Unknown]

NARRATIVE: CASE EVENT DATE: 20160819
